FAERS Safety Report 11690156 (Version 1)
Quarter: 2015Q4

REPORT INFORMATION
  Report Type: Spontaneous
  Country: US (occurrence: None)
  Receive Date: 20151030
  Receipt Date: 20151030
  Transmission Date: 20160304
  Serious: Yes (Life-Threatening, Hospitalization, Disabling, Other)
  Sender: FDA-Public Use
  Company Number: None

PATIENT
  Age: 41 Year
  Sex: Female
  Weight: 61.24 kg

DRUGS (5)
  1. KEPPRA [Concomitant]
     Active Substance: LEVETIRACETAM
  2. PROZAC [Concomitant]
     Active Substance: FLUOXETINE HYDROCHLORIDE
  3. DICOFENAC SOD DR 75 MG CARLSBAD TECHNOLOGY [Suspect]
     Active Substance: DICLOFENAC SODIUM
     Indication: MENISCUS INJURY
     Dosage: 1 TAB 2X A DAY AFTER MEALS, TWICE DAILY, TAKEN BY MOUTH
     Route: 048
     Dates: start: 20150331, end: 20150508
  4. MIRTAZAPINE. [Concomitant]
     Active Substance: MIRTAZAPINE
  5. PREVACID [Concomitant]
     Active Substance: LANSOPRAZOLE

REACTIONS (6)
  - Brain injury [None]
  - Overdose [None]
  - Chest pain [None]
  - Cardiac arrest [None]
  - Heart rate irregular [None]
  - Panic attack [None]

NARRATIVE: CASE EVENT DATE: 20150508
